FAERS Safety Report 23159461 (Version 1)
Quarter: 2023Q4

REPORT INFORMATION
  Report Type: Spontaneous
  Country: US (occurrence: None)
  Receive Date: 20231107
  Receipt Date: 20231107
  Transmission Date: 20240109
  Serious: Yes (Disabling)
  Sender: FDA-Public Use
  Company Number: None

PATIENT
  Age: 69 Year
  Sex: Male
  Weight: 78.75 kg

DRUGS (6)
  1. LEQVIO [Suspect]
     Active Substance: INCLISIRAN SODIUM
     Indication: Blood cholesterol increased
     Dosage: OTHER QUANTITY : 1 INJECTION(S);?OTHER FREQUENCY : 6 MONTHS;?
     Route: 030
     Dates: start: 20221103, end: 20230706
  2. ATENOLOL [Concomitant]
     Active Substance: ATENOLOL
  3. NASACORT [Concomitant]
     Active Substance: TRIAMCINOLONE ACETONIDE
  4. FISH OIL [Concomitant]
     Active Substance: FISH OIL
  5. COENZYME Q10 [Concomitant]
     Active Substance: DIETARY SUPPLEMENT\UBIDECARENONE
  6. Musinex [Concomitant]

REACTIONS (12)
  - Cystitis [None]
  - Blood urine present [None]
  - Bronchitis [None]
  - Arthralgia [None]
  - Myalgia [None]
  - Muscle spasms [None]
  - Headache [None]
  - Flushing [None]
  - Muscle strain [None]
  - Diarrhoea [None]
  - Fatigue [None]
  - Abdominal discomfort [None]

NARRATIVE: CASE EVENT DATE: 20230906
